FAERS Safety Report 23110402 (Version 1)
Quarter: 2023Q4

REPORT INFORMATION
  Report Type: Spontaneous
  Country: US (occurrence: None)
  Receive Date: 20231024
  Receipt Date: 20231024
  Transmission Date: 20240110
  Serious: Yes (Hospitalization)
  Sender: FDA-Public Use
  Company Number: None

PATIENT
  Age: 75 Year
  Sex: Male
  Weight: 98.4 kg

DRUGS (1)
  1. SULFAMETHOXAZOLE AND TRIMETHOPRIM [Suspect]
     Active Substance: SULFAMETHOXAZOLE\TRIMETHOPRIM
     Dosage: FREQUENCY : TWICE A DAY;?
     Route: 048
     Dates: start: 20220307, end: 20220316

REACTIONS (12)
  - Asthenia [None]
  - Paraesthesia [None]
  - Paraesthesia [None]
  - Pruritus [None]
  - Vomiting [None]
  - Bradycardia [None]
  - Blood creatinine increased [None]
  - Hyperkalaemia [None]
  - Adverse drug reaction [None]
  - Circumstance or information capable of leading to medication error [None]
  - Contraindicated product prescribed [None]
  - Intercepted product prescribing error [None]

NARRATIVE: CASE EVENT DATE: 20220316
